FAERS Safety Report 17299887 (Version 1)
Quarter: 2020Q1

REPORT INFORMATION
  Report Type: Spontaneous
  Country: US (occurrence: US)
  Receive Date: 20200122
  Receipt Date: 20200122
  Transmission Date: 20200409
  Serious: No
  Sender: FDA-Public Use
  Company Number: US-ALLERGAN-1933473US

PATIENT
  Sex: Female
  Weight: 79.82 kg

DRUGS (4)
  1. UNSPECIFIED MEDICATION FOR HIGH BLOOD PRESSURE [Concomitant]
     Indication: HYPERTENSION
  2. RESTASIS [Suspect]
     Active Substance: CYCLOSPORINE
     Indication: DRY EYE
     Dosage: 1 GTT, BID (MORNING AND NIGHT)
     Route: 047
  3. UNSPECIFIED MEDICATION FOR HYPOTHYROIDISM [Concomitant]
     Active Substance: UNSPECIFIED INGREDIENT
     Indication: HYPOTHYROIDISM
  4. UNSPECIFIED MEDICATION HIGH CHOLESTEROL [Concomitant]
     Indication: BLOOD CHOLESTEROL INCREASED

REACTIONS (2)
  - Multiple use of single-use product [Unknown]
  - Product storage error [Unknown]
